FAERS Safety Report 11515856 (Version 2)
Quarter: 2015Q4

REPORT INFORMATION
  Report Type: Report from Study
  Country: US (occurrence: US)
  Receive Date: 20150916
  Receipt Date: 20151019
  Transmission Date: 20160304
  Serious: Yes (Hospitalization)
  Sender: FDA-Public Use
  Company Number: US-EXELIXIS-XL18415005663

PATIENT
  Age: 53 Year
  Sex: Male
  Weight: 53.4 kg

DRUGS (9)
  1. OPIUM. [Concomitant]
     Active Substance: OPIUM
  2. XL184 [Suspect]
     Active Substance: CABOZANTINIB
     Indication: SMALL INTESTINE CARCINOMA METASTATIC
     Dosage: 60 MG, QD
     Route: 048
     Dates: start: 20150820, end: 20150901
  3. OXYCODONE [Concomitant]
     Active Substance: OXYCODONE
  4. CLONAZEPAM. [Concomitant]
     Active Substance: CLONAZEPAM
  5. ONDANSETRON [Concomitant]
     Active Substance: ONDANSETRON
  6. TADALAFIL [Concomitant]
     Active Substance: TADALAFIL
  7. DIPHENOXYLATE/ATROPINE [Concomitant]
     Active Substance: ATROPINE\DIPHENOXYLATE
  8. MIRTAZAPINE. [Concomitant]
     Active Substance: MIRTAZAPINE
  9. XL184 [Suspect]
     Active Substance: CABOZANTINIB
     Dosage: 40 MG, QD
     Route: 048
     Dates: start: 20151001

REACTIONS (2)
  - Colitis [Unknown]
  - Small intestinal obstruction [Unknown]

NARRATIVE: CASE EVENT DATE: 20150909
